FAERS Safety Report 17019732 (Version 1)
Quarter: 2019Q4

REPORT INFORMATION
  Report Type: Spontaneous
  Country: FR (occurrence: FR)
  Receive Date: 20191112
  Receipt Date: 20191112
  Transmission Date: 20200122
  Serious: Yes (Hospitalization, Other)
  Sender: FDA-Public Use
  Company Number: FR-AUROBINDO-AUR-APL-2019-072036

PATIENT
  Age: 50 Year
  Sex: Male

DRUGS (3)
  1. PARACETAMOL [Suspect]
     Active Substance: ACETAMINOPHEN
     Indication: TOOTHACHE
     Dosage: 4 GRAM, ONCE A DAY
     Route: 048
     Dates: start: 20191016, end: 20191019
  2. LENVIMA [Concomitant]
     Active Substance: LENVATINIB
     Indication: THYROID CANCER
     Dosage: 20 MILLIGRAM, ONCE A DAY
     Route: 048
     Dates: start: 20190628, end: 20191019
  3. LEVOTHYROX [Concomitant]
     Active Substance: LEVOTHYROXINE
     Indication: THYROID CANCER
     Dosage: 150 MICROGRAM, ONCE A DAY
     Route: 048

REACTIONS (4)
  - Hepatic failure [Recovering/Resolving]
  - Overdose [Recovered/Resolved]
  - Duplicate therapy error [Recovered/Resolved]
  - Thrombocytopenia [Recovering/Resolving]

NARRATIVE: CASE EVENT DATE: 20191016
